FAERS Safety Report 8227226-3 (Version None)
Quarter: 2012Q1

REPORT INFORMATION
  Report Type: 
  Country: None (occurrence: None)
  Receive Date: 20120322
  Receipt Date: 20120320
  Transmission Date: 20120608
  Serious: Yes (Life-Threatening)
  Sender: FDA-Public Use
  Company Number: CN-JNJFOC-20120309374

PATIENT
  Age: 45 Year
  Sex: Female

DRUGS (4)
  1. THYMOSIN [Concomitant]
     Indication: IMMUNE ENHANCEMENT THERAPY
     Route: 065
  2. IMMUNOSUPPRESSANTS [Concomitant]
     Route: 065
  3. POLYGAM S/D [Concomitant]
     Indication: IMMUNE ENHANCEMENT THERAPY
     Route: 065
  4. SPORANOX [Suspect]
     Indication: FUNGAL INFECTION
     Route: 042

REACTIONS (3)
  - CARDIAC FAILURE [None]
  - RESPIRATORY FAILURE [None]
  - DRUG INEFFECTIVE [None]
